FAERS Safety Report 7473106-0 (Version None)
Quarter: 2011Q2

REPORT INFORMATION
  Report Type: 
  Country: None (occurrence: None)
  Receive Date: 20110503
  Receipt Date: 20110418
  Transmission Date: 20111010
  Serious: Yes (Other)
  Sender: FDA-Public Use
  Company Number: AUR-APL-2011-01431

PATIENT
  Age: 53 Year
  Sex: Female

DRUGS (14)
  1. FLEXERIL [Suspect]
  2. LITHIUM CARBONATE [Suspect]
  3. ZOFRAN [Suspect]
  4. PLAVIX [Suspect]
  5. ACIPHEX [Suspect]
  6. SYMBICORT [Suspect]
  7. PROZAC [Suspect]
  8. NICODERM CQ [Suspect]
     Indication: SMOKING CESSATION THERAPY
     Dosage: 21MG
  9. NICOTINE POLACRILEX [Suspect]
     Indication: SMOKING CESSATION THERAPY
     Dosage: 4 MG
  10. ATIVAN [Suspect]
  11. LISINOPRIL [Suspect]
  12. GLYBURIDE [Suspect]
  13. PREDNISONE [Suspect]
  14. LEVOXYL [Suspect]

REACTIONS (5)
  - DRUG INTERACTION [None]
  - DRUG ADMINISTRATION ERROR [None]
  - DYSPEPSIA [None]
  - NIGHTMARE [None]
  - HALLUCINATION [None]
